FAERS Safety Report 24263280 (Version 1)
Quarter: 2024Q3

REPORT INFORMATION
  Report Type: Spontaneous
  Country: US (occurrence: None)
  Receive Date: 20240828
  Receipt Date: 20240828
  Transmission Date: 20241016
  Serious: Yes (unspecified)
  Sender: Public
  Company Number: None

PATIENT
  Age: 29 Year
  Sex: Female
  Weight: 53.52 kg

DRUGS (1)
  1. PARAGARD T 380A [Suspect]
     Active Substance: COPPER

REACTIONS (4)
  - Haemorrhage [None]
  - Muscle spasms [None]
  - Pain [None]
  - Device dislocation [None]

NARRATIVE: CASE EVENT DATE: 20220727
